FAERS Safety Report 8961595 (Version 2)
Quarter: 2013Q1

REPORT INFORMATION
  Report Type: Spontaneous
  Country: US (occurrence: US)
  Receive Date: 20121212
  Receipt Date: 20130110
  Transmission Date: 20140127
  Serious: No
  Sender: FDA-Public Use
  Company Number: US-VERTEX PHARMACEUTICALS INC.-2012-025828

PATIENT
  Age: 58 Year
  Sex: Male
  Weight: 99 kg

DRUGS (5)
  1. INCIVEK [Suspect]
     Indication: HEPATITIS C
     Dosage: 750 MG, TID
     Route: 048
     Dates: start: 20121112
  2. RIBAPAK [Suspect]
     Indication: HEPATITIS C
     Dosage: 600 MG, BID
     Dates: start: 20121112
  3. PEGASYS [Suspect]
     Indication: HEPATITIS C
     Dosage: 180 ?G, QW
     Route: 058
     Dates: start: 20121112
  4. HCTC [Concomitant]
     Dosage: 12.5 MG, QD
  5. IRBESARTAN HCTZ [Concomitant]
     Dosage: 300/12.5 MG ONCE DAILY

REACTIONS (3)
  - Photophobia [Unknown]
  - Visual impairment [Not Recovered/Not Resolved]
  - Rash pruritic [Not Recovered/Not Resolved]
